FAERS Safety Report 7285244-6 (Version None)
Quarter: 2011Q1

REPORT INFORMATION
  Report Type: 
  Country: None (occurrence: None)
  Receive Date: 20110210
  Receipt Date: 20110119
  Transmission Date: 20110831
  Serious: No
  Sender: FDA-Public Use
  Company Number: US-B.I. PHARMACEUTICALS,INC./RIDGEFIELD-2011-BP-02007BP

PATIENT
  Age: 80 Year
  Sex: Female

DRUGS (1)
  1. PRADAXA [Suspect]
     Indication: ATRIAL FIBRILLATION
     Dosage: 300 MG
     Route: 048
     Dates: start: 20110104, end: 20110110

REACTIONS (11)
  - PERIPHERAL COLDNESS [None]
  - PAIN IN EXTREMITY [None]
  - CHEST PAIN [None]
  - ARTHRALGIA [None]
  - RASH [None]
  - DECREASED APPETITE [None]
  - PRURITUS GENERALISED [None]
  - DISORIENTATION [None]
  - MUSCULAR WEAKNESS [None]
  - RETCHING [None]
  - DYSARTHRIA [None]
